FAERS Safety Report 15495001 (Version 1)
Quarter: 2018Q4

REPORT INFORMATION
  Report Type: Spontaneous
  Country: BR (occurrence: BR)
  Receive Date: 20181012
  Receipt Date: 20181012
  Transmission Date: 20190205
  Serious: Yes (Other)
  Sender: FDA-Public Use
  Company Number: BR-GLAXOSMITHKLINE-BR2017204172

PATIENT
  Sex: Male

DRUGS (1)
  1. DICLOFENAC [Suspect]
     Active Substance: DICLOFENAC
     Indication: PRODUCT USED FOR UNKNOWN INDICATION
     Dosage: UNK
     Route: 065

REACTIONS (11)
  - Blood pressure increased [Unknown]
  - Asthenia [Unknown]
  - Movement disorder [Unknown]
  - Dyspnoea [Unknown]
  - Gait disturbance [Unknown]
  - Drug hypersensitivity [Unknown]
  - Heart rate increased [Unknown]
  - Tremor [Unknown]
  - Paraesthesia [Unknown]
  - Hypothermia [Unknown]
  - Eye colour change [Unknown]
